FAERS Safety Report 6415905 (Version 6)
Quarter: 2016Q4

REPORT INFORMATION
  Report Type: Spontaneous
  Country: US (occurrence: US)
  Receive Date: 20070917
  Receipt Date: 20161206
  Transmission Date: 20170207
  Serious: Yes (Life-Threatening, Hospitalization, Other)
  Sender: FDA-Public Use
  Company Number: US-ASTRAZENECA-2006UW19429

PATIENT
  Age: 53 Year
  Sex: Female
  Weight: 57.6 kg

DRUGS (30)
  1. SEROQUEL [Suspect]
     Active Substance: QUETIAPINE FUMARATE
     Indication: ANXIETY
     Dosage: 50 MG BID, 100 MG TABLET SPLIT IN HALF
     Route: 048
     Dates: start: 20060915, end: 20060930
  2. SEROQUEL [Suspect]
     Active Substance: QUETIAPINE FUMARATE
     Indication: MOOD SWINGS
     Dosage: 50 MG BID, 100 MG TABLET SPLIT IN HALF
     Route: 048
     Dates: start: 20060915, end: 20060930
  3. CRESTOR [Suspect]
     Active Substance: ROSUVASTATIN CALCIUM
     Indication: BLOOD CHOLESTEROL INCREASED
     Route: 048
     Dates: start: 20130822
  4. KLONOPIN [Concomitant]
     Active Substance: CLONAZEPAM
     Indication: ANXIETY
     Dosage: 6.0MG UNKNOWN
     Route: 048
     Dates: start: 2002
  5. CEFTAN [Concomitant]
  6. CLOZEPAM [Concomitant]
  7. LITHOBID [Concomitant]
     Active Substance: LITHIUM CARBONATE
  8. TOPROL XL [Suspect]
     Active Substance: METOPROLOL SUCCINATE
     Indication: HEART VALVE INCOMPETENCE
     Route: 048
     Dates: start: 2003
  9. TOPROL XL [Suspect]
     Active Substance: METOPROLOL SUCCINATE
     Indication: HYPERTENSION
     Route: 048
     Dates: start: 2003
  10. TOPROL XL [Suspect]
     Active Substance: METOPROLOL SUCCINATE
     Indication: CARDIAC DISORDER
     Dosage: GENERIC, 50 MG TWO TIMES A DAY
     Route: 065
     Dates: start: 2013
  11. SEROQUEL [Suspect]
     Active Substance: QUETIAPINE FUMARATE
     Indication: BIPOLAR DISORDER
     Dosage: 50 MG BID, 100 MG TABLET SPLIT IN HALF
     Route: 048
     Dates: start: 20060915, end: 20060930
  12. SYNTHROID [Concomitant]
     Active Substance: LEVOTHYROXINE SODIUM
  13. NEXIUM [Suspect]
     Active Substance: ESOMEPRAZOLE MAGNESIUM
     Indication: GASTROOESOPHAGEAL REFLUX DISEASE
     Route: 048
     Dates: start: 2011
  14. TOPROL XL [Suspect]
     Active Substance: METOPROLOL SUCCINATE
     Indication: HYPERTENSION
     Dosage: GENERIC, 50 MG TWO TIMES A DAY
     Route: 065
     Dates: start: 2013
  15. ASPIRIN. [Concomitant]
     Active Substance: ASPIRIN
     Dosage: 325.0MG UNKNOWN
  16. TRETINOIN. [Concomitant]
     Active Substance: TRETINOIN
  17. TOPROL XL [Suspect]
     Active Substance: METOPROLOL SUCCINATE
     Indication: HEART RATE IRREGULAR
     Dosage: GENERIC, 50 MG TWO TIMES A DAY
     Route: 065
     Dates: start: 2013
  18. CRESTOR [Suspect]
     Active Substance: ROSUVASTATIN CALCIUM
     Indication: BLOOD CHOLESTEROL INCREASED
     Route: 048
     Dates: start: 2011
  19. SEROQUEL [Suspect]
     Active Substance: QUETIAPINE FUMARATE
     Indication: DEPRESSION
     Dosage: 50 MG BID, 100 MG TABLET SPLIT IN HALF
     Route: 048
     Dates: start: 20060915, end: 20060930
  20. LITHIUM. [Concomitant]
     Active Substance: LITHIUM
     Indication: ANXIETY
     Dosage: 600.0MG UNKNOWN
     Route: 048
     Dates: start: 2002
  21. NORVASC [Concomitant]
     Active Substance: AMLODIPINE BESYLATE
     Dosage: 5.0MG UNKNOWN
  22. BENTYL [Concomitant]
     Active Substance: DICYCLOMINE HYDROCHLORIDE
  23. TOPROL XL [Suspect]
     Active Substance: METOPROLOL SUCCINATE
     Indication: CARDIAC DISORDER
     Route: 048
     Dates: start: 2003
  24. CRESTOR [Suspect]
     Active Substance: ROSUVASTATIN CALCIUM
     Indication: BLOOD CHOLESTEROL INCREASED
     Route: 048
     Dates: start: 201510
  25. OXYCODONE/ACETAMINOPHEN [Concomitant]
     Active Substance: ACETAMINOPHEN\OXYCODONE HYDROCHLORIDE
  26. ZOLOFT [Concomitant]
     Active Substance: SERTRALINE HYDROCHLORIDE
     Indication: DEPRESSION
     Dosage: 100 MG DAILY
     Route: 048
     Dates: start: 2002
  27. CIPROFLOXACIN. [Concomitant]
     Active Substance: CIPROFLOXACIN
  28. TOPROL XL [Suspect]
     Active Substance: METOPROLOL SUCCINATE
     Indication: HEART RATE IRREGULAR
     Route: 048
     Dates: start: 2003
  29. TOPROL XL [Suspect]
     Active Substance: METOPROLOL SUCCINATE
     Indication: HEART VALVE INCOMPETENCE
     Dosage: GENERIC, 50 MG TWO TIMES A DAY
     Route: 065
     Dates: start: 2013
  30. LYRICA [Concomitant]
     Active Substance: PREGABALIN

REACTIONS (33)
  - Stomach mass [Unknown]
  - Postoperative hernia [Unknown]
  - Tension [Unknown]
  - Anxiety [Recovered/Resolved]
  - Fatigue [Unknown]
  - Gastrooesophageal reflux disease [Unknown]
  - Bipolar disorder [Unknown]
  - Irritability [Unknown]
  - Migraine [Unknown]
  - Somnolence [Unknown]
  - Cerebrovascular accident [Unknown]
  - Blood cholesterol increased [Unknown]
  - Mass [Unknown]
  - Drug hypersensitivity [Unknown]
  - Adverse drug reaction [Unknown]
  - Condition aggravated [Unknown]
  - Feeling jittery [Unknown]
  - Diabetes mellitus [Unknown]
  - Off label use [Unknown]
  - Malaise [Unknown]
  - Bronchitis [Unknown]
  - Procedural complication [Unknown]
  - Feeling abnormal [Recovered/Resolved]
  - Nausea [Unknown]
  - Drug ineffective [Unknown]
  - Drug dose omission [Unknown]
  - Product use issue [Unknown]
  - Blood pressure increased [Unknown]
  - Mood swings [Unknown]
  - Intentional product misuse [Unknown]
  - Heart rate increased [Recovered/Resolved]
  - Palpitations [Unknown]
  - Postoperative wound infection [Unknown]

NARRATIVE: CASE EVENT DATE: 2006
